FAERS Safety Report 7421384 (Version 3)
Quarter: 2014Q1

REPORT INFORMATION
  Report Type: Spontaneous
  Country: US (occurrence: US)
  Receive Date: 20100616
  Receipt Date: 20140129
  Transmission Date: 20141002
  Serious: Yes (Hospitalization)
  Sender: FDA-Public Use
  Company Number: US-JNJFOC-20100603314

PATIENT
  Sex: Male
  Weight: 81.65 kg

DRUGS (10)
  1. DURAGESIC [Suspect]
     Indication: OSTEOPOROSIS
     Route: 062
     Dates: start: 2001
  2. DURAGESIC [Suspect]
     Indication: OSTEOPENIA
     Route: 062
     Dates: start: 2001
  3. SANDOZ FENTANYL TRANSDERMAL SYSTEM [Suspect]
     Indication: OSTEOPOROSIS
     Route: 062
     Dates: end: 201005
  4. SANDOZ FENTANYL TRANSDERMAL SYSTEM [Suspect]
     Indication: OSTEOPENIA
     Route: 062
     Dates: end: 201005
  5. SANDOZ FENTANYL TRANSDERMAL SYSTEM [Suspect]
     Indication: OSTEOPOROSIS
     Route: 062
     Dates: start: 201005
  6. SANDOZ FENTANYL TRANSDERMAL SYSTEM [Suspect]
     Indication: OSTEOPENIA
     Route: 062
     Dates: start: 201005
  7. OXYCODONE [Concomitant]
     Indication: BREAKTHROUGH PAIN
     Route: 048
  8. CALCIUM [Concomitant]
     Indication: OSTEOPOROSIS
     Route: 048
  9. VITAMIN D [Concomitant]
     Indication: OSTEOPOROSIS
     Route: 048
  10. PROZAC [Concomitant]
     Route: 048

REACTIONS (10)
  - Hip surgery [Recovered/Resolved]
  - Bone disorder [Unknown]
  - Depressed mood [Not Recovered/Not Resolved]
  - Tooth loss [Recovered/Resolved]
  - Drug effect decreased [Not Recovered/Not Resolved]
  - Depressed mood [Not Recovered/Not Resolved]
  - Euphoric mood [Not Recovered/Not Resolved]
  - Product quality issue [Unknown]
  - Product adhesion issue [Unknown]
  - Wrong technique in drug usage process [Unknown]
